FAERS Safety Report 6336837-1 (Version None)
Quarter: 2009Q3

REPORT INFORMATION
  Report Type: 
  Country: None (occurrence: None)
  Receive Date: 20090828
  Receipt Date: 20090828
  Transmission Date: 20100115
  Serious: No
  Sender: FDA-Public Use
  Company Number: None

PATIENT
  Age: 65 Year
  Sex: Female
  Weight: 84.369 kg

DRUGS (2)
  1. CUBICIN [Suspect]
     Indication: POST PROCEDURAL INFECTION
     Dosage: 400 MG DAILY IV
     Route: 042
     Dates: start: 20090806, end: 20090826
  2. CUBICIN [Suspect]
     Indication: SHOULDER ARTHROPLASTY
     Dosage: 400 MG DAILY IV
     Route: 042
     Dates: start: 20090806, end: 20090826

REACTIONS (9)
  - ANXIETY [None]
  - CHILLS [None]
  - DECREASED APPETITE [None]
  - FEELING HOT [None]
  - FEELING OF BODY TEMPERATURE CHANGE [None]
  - HYPERHIDROSIS [None]
  - INSOMNIA [None]
  - MYALGIA [None]
  - UNEVALUABLE EVENT [None]
